FAERS Safety Report 10049515 (Version 1)
Quarter: 2014Q1

REPORT INFORMATION
  Report Type: Spontaneous
  Country: US (occurrence: None)
  Receive Date: 20140331
  Receipt Date: 20140331
  Transmission Date: 20141002
  Serious: Yes (Death)
  Sender: FDA-Public Use
  Company Number: None

PATIENT
  Age: 52 Year
  Sex: Male
  Weight: 109.77 kg

DRUGS (15)
  1. JANUVIA [Suspect]
     Indication: TYPE 2 DIABETES MELLITUS
     Dates: start: 20090729, end: 20120601
  2. ACTOS [Concomitant]
  3. CELEBREX [Concomitant]
  4. CLOMIPRAMINE [Concomitant]
  5. CLONAZEPAM [Concomitant]
  6. EFFEXOR XR [Concomitant]
  7. JANUVIA [Concomitant]
  8. LANTUS [Concomitant]
  9. LISINOPRIL [Concomitant]
  10. METFORMIN HCL [Concomitant]
  11. PRECISION XTRA TEST STRIP USE ONE STRIP FOR TESTING [Concomitant]
  12. SYRINGE, INSULIN [Concomitant]
  13. THERA-M HP VITAMINS AND MINERALS TABLET [Concomitant]
  14. THIZANIDINE HCL [Concomitant]
  15. TRICOR [Concomitant]

REACTIONS (1)
  - Pancreatic carcinoma [None]
